FAERS Safety Report 18923790 (Version 1)
Quarter: 2021Q1

REPORT INFORMATION
  Report Type: Report from Study
  Country: US (occurrence: US)
  Receive Date: 20210222
  Receipt Date: 20210222
  Transmission Date: 20210420
  Serious: Yes (Life-Threatening, Hospitalization, Other)
  Sender: FDA-Public Use
  Company Number: US-JNJFOC-20210133057

PATIENT
  Age: 71 Year
  Sex: Female
  Weight: 77.3 kg

DRUGS (2)
  1. UPTRAVI [Suspect]
     Active Substance: SELEXIPAG
     Indication: PULMONARY HYPERTENSION
     Dosage: 400 MCG ORALLY 2 TIMES DAILY
     Route: 048
     Dates: start: 20190117
  2. MACITENTAN [Suspect]
     Active Substance: MACITENTAN
     Indication: PULMONARY HYPERTENSION
     Route: 065
     Dates: start: 20150602

REACTIONS (2)
  - Urinary tract infection [Not Recovered/Not Resolved]
  - Myocardial infarction [Unknown]

NARRATIVE: CASE EVENT DATE: 20210118
